FAERS Safety Report 13495885 (Version 1)
Quarter: 2017Q2

REPORT INFORMATION
  Report Type: Spontaneous
  Country: US (occurrence: US)
  Receive Date: 20170428
  Receipt Date: 20170428
  Transmission Date: 20170830
  Serious: Yes (Hospitalization, Other)
  Sender: FDA-Public Use
  Company Number: US-GLAXOSMITHKLINE-US2017061467

PATIENT
  Sex: Female

DRUGS (2)
  1. ADVAIR DISKUS [Suspect]
     Active Substance: FLUTICASONE PROPIONATE\SALMETEROL XINAFOATE
     Indication: CHRONIC OBSTRUCTIVE PULMONARY DISEASE
     Dosage: 1 PUFF(S), BID
     Route: 055
  2. VENTOLIN HFA [Concomitant]
     Active Substance: ALBUTEROL SULFATE

REACTIONS (13)
  - Product use issue [Unknown]
  - Eye irritation [Unknown]
  - Blood pressure increased [Unknown]
  - Hernia repair [Unknown]
  - Adverse event [Unknown]
  - Wheezing [Unknown]
  - Feeling abnormal [Unknown]
  - Eructation [Unknown]
  - Dyspepsia [Unknown]
  - Oesophageal pain [Unknown]
  - Hiatus hernia [Unknown]
  - Tongue discomfort [Unknown]
  - Oral discomfort [Unknown]

NARRATIVE: CASE EVENT DATE: 201704
